FAERS Safety Report 7799680-2 (Version None)
Quarter: 2011Q4

REPORT INFORMATION
  Report Type: 
  Country: None (occurrence: None)
  Receive Date: 20111004
  Receipt Date: 20110927
  Transmission Date: 20120403
  Serious: Yes (Other)
  Sender: FDA-Public Use
  Company Number: LEO-2011-00775

PATIENT
  Age: 24 Year
  Sex: Female
  Weight: 49.5 kg

DRUGS (1)
  1. INNOHEP [Suspect]
     Indication: THROMBOSIS PROPHYLAXIS
     Dosage: INTRAVENOUS
     Route: 042
     Dates: start: 20110920, end: 20110920

REACTIONS (1)
  - HYPERSENSITIVITY [None]
